FAERS Safety Report 23784249 (Version 1)
Quarter: 2024Q2

REPORT INFORMATION
  Report Type: Spontaneous
  Country: US (occurrence: None)
  Receive Date: 20240425
  Receipt Date: 20240425
  Transmission Date: 20240716
  Serious: Yes (Disabling, Other)
  Sender: FDA-Public Use
  Company Number: None

PATIENT
  Age: 31 Year
  Sex: Male
  Weight: 75.15 kg

DRUGS (4)
  1. ROGAINE [Suspect]
     Active Substance: MINOXIDIL
     Indication: Alopecia
     Dosage: TOPICAL
     Route: 061
     Dates: start: 20240418, end: 20240423
  2. albuterol [Concomitant]
  3. one a day vitamin [Concomitant]
  4. PROTEIN [Concomitant]

REACTIONS (8)
  - Heart rate increased [None]
  - Presyncope [None]
  - Anxiety [None]
  - Panic attack [None]
  - Libido decreased [None]
  - Feeling cold [None]
  - Insomnia [None]
  - Tremor [None]

NARRATIVE: CASE EVENT DATE: 20240423
